FAERS Safety Report 16464389 (Version 2)
Quarter: 2019Q3

REPORT INFORMATION
  Report Type: Spontaneous
  Country: MX (occurrence: MX)
  Receive Date: 20190621
  Receipt Date: 20190812
  Transmission Date: 20191004
  Serious: No
  Sender: FDA-Public Use
  Company Number: MX-ASTRAZENECA-2019SE88702

PATIENT
  Age: 696 Month
  Sex: Female
  Weight: 72 kg

DRUGS (5)
  1. FISIOFER [Concomitant]
     Indication: ANAEMIA
     Route: 048
     Dates: start: 201904
  2. TIAMINAL B12 [Concomitant]
     Indication: ANAEMIA
     Route: 048
     Dates: start: 201904
  3. PREGABALIN. [Concomitant]
     Active Substance: PREGABALIN
     Indication: NEURALGIA
     Route: 048
     Dates: start: 2018
  4. TELMISARTAN. [Concomitant]
     Active Substance: TELMISARTAN
     Indication: HYPERTENSION
     Route: 048
     Dates: start: 201904
  5. XIGDUO XR [Suspect]
     Active Substance: DAPAGLIFLOZIN PROPANEDIOL\METFORMIN HYDROCHLORIDE
     Indication: TYPE 2 DIABETES MELLITUS
     Route: 048
     Dates: start: 201904

REACTIONS (1)
  - Anaemia [Unknown]

NARRATIVE: CASE EVENT DATE: 201904
